FAERS Safety Report 10032905 (Version 1)
Quarter: 2014Q1

REPORT INFORMATION
  Report Type: Spontaneous
  Country: US (occurrence: US)
  Receive Date: 20140324
  Receipt Date: 20140324
  Transmission Date: 20141002
  Serious: Yes (Other)
  Sender: FDA-Public Use
  Company Number: US-PFIZER INC-2014083603

PATIENT
  Age: 50 Year
  Sex: Female
  Weight: 94.79 kg

DRUGS (9)
  1. LYRICA [Suspect]
     Indication: NERVE COMPRESSION
     Dosage: UNK
     Dates: start: 20100117
  2. FLEXERIL [Concomitant]
     Indication: MUSCULOSKELETAL DISCOMFORT
     Dosage: UNK
  3. GEODON [Concomitant]
     Indication: SLEEP DISORDER
     Dosage: UNK
  4. CYMBALTA [Concomitant]
     Dosage: UNK
  5. XANAX [Concomitant]
     Dosage: UNK
  6. PREVACID [Concomitant]
     Dosage: UNK
  7. WELLBUTRIN [Concomitant]
     Indication: SMOKING CESSATION THERAPY
     Dosage: UNK
  8. TRAZODONE [Concomitant]
     Dosage: UNK
  9. OXYCODONE [Concomitant]
     Dosage: UNK

REACTIONS (2)
  - Spinal disorder [Unknown]
  - Weight increased [Unknown]
